FAERS Safety Report 6680927-0 (Version None)
Quarter: 2010Q2

REPORT INFORMATION
  Report Type: 
  Country: None (occurrence: None)
  Receive Date: 20100414
  Receipt Date: 20100405
  Transmission Date: 20101027
  Serious: Yes (Other)
  Sender: FDA-Public Use
  Company Number: JP-ASTRAZENECA-2010SE07054

PATIENT
  Age: 61 Year
  Sex: Female
  Weight: 67 kg

DRUGS (7)
  1. ARIMIDEX [Suspect]
     Indication: BREAST CANCER
     Route: 048
     Dates: start: 20090428
  2. ONEALFA [Concomitant]
     Indication: OSTEOPOROSIS
     Route: 048
     Dates: start: 20090526
  3. ASPARA-CA [Concomitant]
     Indication: OSTEOPOROSIS
     Route: 048
     Dates: start: 20090526
  4. EUGLUCON [Concomitant]
     Indication: DIABETES MELLITUS
     Route: 048
  5. EUGLUCON [Concomitant]
     Dosage: NUMBER OF SEPARATE DOSES UNKNOWN, 3.75 MG DAILY
     Route: 048
     Dates: start: 20100215
  6. MELBIN [Concomitant]
     Indication: DIABETES MELLITUS
     Route: 048
  7. MELBIN [Concomitant]
     Dosage: TWO TABLETS, 500 MG DAILY
     Route: 048
     Dates: start: 20091201

REACTIONS (2)
  - DIABETES MELLITUS [None]
  - HEPATIC STEATOSIS [None]
